FAERS Safety Report 14595995 (Version 2)
Quarter: 2018Q2

REPORT INFORMATION
  Report Type: Spontaneous
  Country: JP (occurrence: JP)
  Receive Date: 20180303
  Receipt Date: 20180430
  Transmission Date: 20180711
  Serious: Yes (Other)
  Sender: FDA-Public Use
  Company Number: JP-009507513-1802JPN002659J

PATIENT
  Age: 29 Year
  Sex: Female
  Weight: 49 kg

DRUGS (3)
  1. BRIDION [Suspect]
     Active Substance: SUGAMMADEX
     Indication: NEUROMUSCULAR BLOCKADE REVERSAL
     Dosage: 200 MG, QD
     Route: 041
     Dates: start: 20180223, end: 20180223
  2. BICANATE [Concomitant]
     Dosage: UNK
     Route: 051
  3. ESLAX INTRAVENOUS 25MG/2.5ML [Concomitant]
     Active Substance: ROCURONIUM BROMIDE
     Dosage: UNK
     Route: 051

REACTIONS (5)
  - Blood pressure decreased [Recovered/Resolved]
  - Shock [Recovering/Resolving]
  - Rash erythematous [Recovering/Resolving]
  - Generalised erythema [Recovered/Resolved]
  - Urticaria [Recovering/Resolving]

NARRATIVE: CASE EVENT DATE: 20180223
